FAERS Safety Report 8797492 (Version 2)
Quarter: 2012Q4

REPORT INFORMATION
  Report Type: 
  Country: US (occurrence: US)
  Receive Date: 20120920
  Receipt Date: 20121030
  Transmission Date: 20130627
  Serious: No
  Sender: FDA-Public Use
  Company Number: US-PFIZER INC-2012230107

PATIENT
  Sex: Female

DRUGS (2)
  1. ESTRING [Suspect]
     Indication: DYSPAREUNIA
     Dosage: UNK
     Route: 067
     Dates: start: 20070910
  2. HUMIRA [Concomitant]
     Dosage: UNK, as needed

REACTIONS (4)
  - Vaginal infection [Unknown]
  - Cystitis [Unknown]
  - Dysuria [Recovered/Resolved]
  - Polyuria [Recovered/Resolved]
